FAERS Safety Report 10089805 (Version 1)
Quarter: 2014Q2

REPORT INFORMATION
  Report Type: Spontaneous
  Country: GB (occurrence: GB)
  Receive Date: 20140421
  Receipt Date: 20140421
  Transmission Date: 20141212
  Serious: Yes (Life-Threatening, Hospitalization, Other)
  Sender: FDA-Public Use
  Company Number: GB-WATSON-2014-07464

PATIENT
  Age: 84 Year
  Sex: Male

DRUGS (2)
  1. GENTAMICIN (UNKNOWN) [Suspect]
     Indication: PRODUCT USED FOR UNKNOWN INDICATION
     Dosage: 120 MG, SINGLE
     Route: 030
  2. INSTILLAGEL [Suspect]
     Indication: PRODUCT USED FOR UNKNOWN INDICATION
     Dosage: 11 ML, UNKNOWN
     Route: 066

REACTIONS (1)
  - Anaphylactic reaction [Recovered/Resolved]
